FAERS Safety Report 15232554 (Version 2)
Quarter: 2018Q3

REPORT INFORMATION
  Report Type: Spontaneous
  Country: DE (occurrence: DE)
  Receive Date: 20180802
  Receipt Date: 20180830
  Transmission Date: 20181010
  Serious: Yes (Other)
  Sender: FDA-Public Use
  Company Number: PHHY2018DE057948

PATIENT
  Sex: Male
  Weight: 55 kg

DRUGS (1)
  1. GLIVEC [Suspect]
     Active Substance: IMATINIB MESYLATE
     Indication: GASTROINTESTINAL STROMAL TUMOUR
     Dosage: 400 MG, QD
     Route: 065
     Dates: start: 2004, end: 20180722

REACTIONS (8)
  - Necrosis [Unknown]
  - Gastrointestinal infection [Unknown]
  - Visual impairment [Unknown]
  - Pain in extremity [Unknown]
  - Blister [Not Recovered/Not Resolved]
  - Weight decreased [Unknown]
  - Peripheral vascular disorder [Recovered/Resolved]
  - Cataract [Unknown]

NARRATIVE: CASE EVENT DATE: 2017
